FAERS Safety Report 11568640 (Version 2)
Quarter: 2015Q4

REPORT INFORMATION
  Report Type: Report from Study
  Country: CR (occurrence: CR)
  Receive Date: 20150929
  Receipt Date: 20151015
  Transmission Date: 20160304
  Serious: Yes (Hospitalization)
  Sender: FDA-Public Use
  Company Number: PHHY2015CR107853

PATIENT
  Age: 63 Year
  Sex: Female
  Weight: 92 kg

DRUGS (4)
  1. ATENOLOL. [Concomitant]
     Active Substance: ATENOLOL
     Indication: PRODUCT USED FOR UNKNOWN INDICATION
     Dosage: 50 MG, BID
     Route: 048
  2. NPH INSULIN [Concomitant]
     Active Substance: INSULIN BEEF
     Indication: PRODUCT USED FOR UNKNOWN INDICATION
     Dosage: 15-20 U, QD
     Route: 058
  3. ENALAPRIL [Concomitant]
     Active Substance: ENALAPRIL
     Indication: PRODUCT USED FOR UNKNOWN INDICATION
     Dosage: 20 MG, BID
     Route: 048
  4. SANDOSTATIN LAR DEPOT [Suspect]
     Active Substance: OCTREOTIDE ACETATE
     Indication: CERVIX NEOPLASM
     Dosage: 1 DF, QMO
     Route: 030

REACTIONS (6)
  - Pollakiuria [Unknown]
  - Hypokinesia [Unknown]
  - Hypoalbuminaemia [Recovering/Resolving]
  - Skin ulcer [Unknown]
  - Generalised oedema [Recovering/Resolving]
  - Off label use [Unknown]
